FAERS Safety Report 6303667-6 (Version None)
Quarter: 2009Q3

REPORT INFORMATION
  Report Type: 
  Country: None (occurrence: None)
  Receive Date: 20090807
  Receipt Date: 20090807
  Transmission Date: 20100115
  Serious: Yes (Other)
  Sender: FDA-Public Use
  Company Number: None

PATIENT
  Age: 90 Year
  Sex: Female
  Weight: 45.3597 kg

DRUGS (1)
  1. BONIVA [Suspect]
     Indication: OSTEOPOROSIS
     Dates: start: 20090802, end: 20090802

REACTIONS (3)
  - COUGH [None]
  - PARANASAL SINUS HYPERSECRETION [None]
  - WHITE BLOOD CELL COUNT INCREASED [None]
